FAERS Safety Report 12903146 (Version 4)
Quarter: 2017Q3

REPORT INFORMATION
  Report Type: Spontaneous
  Country: JP (occurrence: JP)
  Receive Date: 20161102
  Receipt Date: 20170726
  Transmission Date: 20171127
  Serious: Yes (Hospitalization)
  Sender: FDA-Public Use
  Company Number: JP-PFIZER INC-2016507333

PATIENT
  Age: 39 Year
  Sex: Male

DRUGS (10)
  1. FENTANYL CITRATE. [Concomitant]
     Active Substance: FENTANYL CITRATE
     Indication: ANALGESIC THERAPY
     Dosage: 500 UG, 1X/DAY
     Route: 048
     Dates: start: 20160915, end: 20160917
  2. DROLEPTAN [Concomitant]
     Active Substance: DROPERIDOL
     Indication: ANALGESIC THERAPY
     Dosage: 1.25 MG, 1X/DAY
     Route: 042
     Dates: start: 20160915, end: 20160917
  3. REBAMIPIDE [Concomitant]
     Active Substance: REBAMIPIDE
     Indication: GASTRIC ULCER
     Dosage: 100 MG, 2X/DAY
     Route: 048
     Dates: start: 20160916, end: 20160919
  4. PARACETA [Concomitant]
     Indication: ANALGESIC THERAPY
     Dosage: 400 MG, 1X/DAY
     Route: 054
     Dates: start: 20160916, end: 20160916
  5. NEXIUM [Suspect]
     Active Substance: ESOMEPRAZOLE MAGNESIUM
     Indication: GASTRIC ULCER
     Dosage: 20 MG, ONCE DAILY, IN THE MORNING
     Route: 048
     Dates: start: 20160916, end: 20160921
  6. ACELIO [Concomitant]
     Active Substance: ACETAMINOPHEN
     Indication: ANALGESIC THERAPY
     Dosage: 500 MG, 2X/DAY
     Route: 041
     Dates: start: 20160916, end: 20160916
  7. CELECOX [Suspect]
     Active Substance: CELECOXIB
     Indication: ANALGESIC THERAPY
     Dosage: 100 MG, TWICE DAILY, MORNING AND AFTERNOON
     Route: 048
     Dates: start: 20160916, end: 20160921
  8. CEFAZOLIN [Suspect]
     Active Substance: CEFAZOLIN
     Indication: ANTIBIOTIC PROPHYLAXIS
     Dosage: 1 G, 2X/DAY
     Route: 041
     Dates: start: 20160915, end: 20160917
  9. CALONAL [Suspect]
     Active Substance: ACETAMINOPHEN
     Indication: ANALGESIC THERAPY
     Dosage: 400-1200 MG/DAY, THRICE DAILY, AS NEEDED
     Route: 048
     Dates: start: 20160916, end: 20160924
  10. OMEPRAL /00661202/ [Concomitant]
     Indication: GASTRIC ULCER
     Dosage: 0.2 G, TWICE DAILY
     Route: 042
     Dates: start: 20160915, end: 20160917

REACTIONS (1)
  - Hepatic function abnormal [Recovered/Resolved]

NARRATIVE: CASE EVENT DATE: 20160918
